FAERS Safety Report 5949419-8 (Version None)
Quarter: 2008Q4

REPORT INFORMATION
  Report Type: 
  Country: None (occurrence: None)
  Receive Date: 20081112
  Receipt Date: 20081031
  Transmission Date: 20090506
  Serious: Yes (Other)
  Sender: FDA-Public Use
  Company Number: PHHY2008DE27039

PATIENT
  Sex: Male

DRUGS (2)
  1. MYFORTIC [Suspect]
     Dosage: 300 MG, UNK
  2. COTRIM [Suspect]

REACTIONS (1)
  - AUTOIMMUNE THROMBOCYTOPENIA [None]
